FAERS Safety Report 10927841 (Version 3)
Quarter: 2015Q1

REPORT INFORMATION
  Report Type: Spontaneous
  Country: BR (occurrence: BR)
  Receive Date: 20150319
  Receipt Date: 20150330
  Transmission Date: 20150721
  Serious: Yes (Other)
  Sender: FDA-Public Use
  Company Number: PHHY2015BR030088

PATIENT
  Sex: Male
  Weight: 76 kg

DRUGS (9)
  1. METFORMIN [Concomitant]
     Active Substance: METFORMIN HYDROCHLORIDE
     Indication: DIABETES MELLITUS
     Dosage: 2 DF (850 MG), QD
     Route: 048
  2. RASILEZ [Suspect]
     Active Substance: ALISKIREN
     Indication: HYPERTENSION
     Dosage: 1 DF (300/5 MG, TABLET), QD (PER DAY)
     Route: 048
  3. STANGLIT [Concomitant]
     Indication: BLOOD CHOLESTEROL ABNORMAL
     Dosage: 30 MG, QD
     Route: 048
  4. BIO D3 VITAMIN [Concomitant]
     Indication: HYPOVITAMINOSIS
     Dosage: 40 DRP, QD
     Route: 048
  5. RASILEZ [Suspect]
     Active Substance: ALISKIREN
     Indication: RENAL IMPAIRMENT
  6. ATORVASTATIN [Concomitant]
     Active Substance: ATORVASTATIN
     Indication: BLOOD CHOLESTEROL ABNORMAL
     Dosage: 1 DF (10 MG), QD (PER DAY)
     Route: 048
  7. VITAMIN D [Concomitant]
     Active Substance: CHOLECALCIFEROL
     Indication: HYPOVITAMINOSIS
     Dosage: 1 DF, QD (PER WEEK)
     Route: 048
  8. INSULIN HUMALOG MIX [Concomitant]
     Indication: DIABETES MELLITUS
     Dosage: 25 U, BID IN THE MORNING AND AT NIGHT
     Route: 058
  9. GLIMEPIRIDE. [Concomitant]
     Active Substance: GLIMEPIRIDE
     Indication: DIABETES MELLITUS
     Dosage: 4 MG, QD
     Route: 048

REACTIONS (8)
  - Haemorrhage [Recovered/Resolved]
  - Therapeutic response unexpected [Unknown]
  - Bone pain [Not Recovered/Not Resolved]
  - Anaemia [Recovered/Resolved]
  - Iron deficiency [Recovered/Resolved]
  - Product use issue [Unknown]
  - Decreased appetite [Recovering/Resolving]
  - Ulcer [Recovered/Resolved]

NARRATIVE: CASE EVENT DATE: 2014
